FAERS Safety Report 9638967 (Version 1)
Quarter: 2013Q4

REPORT INFORMATION
  Report Type: Spontaneous
  Country: US (occurrence: US)
  Receive Date: 20131022
  Receipt Date: 20131022
  Transmission Date: 20140711
  Serious: Yes (Hospitalization)
  Sender: FDA-Public Use
  Company Number: US-B.I. PHARMACEUTICALS,INC./RIDGEFIELD-2013-BI-32903BP

PATIENT
  Age: 57 Year
  Sex: Female
  Weight: 57 kg

DRUGS (13)
  1. SPIRIVA [Suspect]
     Indication: CHRONIC OBSTRUCTIVE PULMONARY DISEASE
     Dosage: 18 MCG
     Route: 055
     Dates: start: 201303
  2. COUMADIN [Concomitant]
     Dosage: 3 MG
     Route: 048
  3. NEXIUM [Concomitant]
     Dosage: 40 MG
     Route: 048
  4. AMIODORONE [Concomitant]
     Dosage: 20 MG
     Route: 048
  5. MULTIVITAMIN [Concomitant]
     Indication: SUPPLEMENTATION THERAPY
     Route: 048
  6. METOPROLOL XL [Concomitant]
     Route: 048
  7. ASPIRIN [Concomitant]
     Indication: CARDIAC DISORDER
     Dosage: 81 MG
     Route: 048
  8. ADVAIR [Concomitant]
     Route: 055
  9. IRON TABLET [Concomitant]
     Indication: SUPPLEMENTATION THERAPY
  10. LASIX [Concomitant]
     Dosage: 40 MG
     Route: 048
  11. SINGULAIR [Concomitant]
  12. SELEXA [Concomitant]
  13. ALBUTEROL [Concomitant]
     Route: 055

REACTIONS (6)
  - Chronic obstructive pulmonary disease [Recovered/Resolved]
  - Chronic obstructive pulmonary disease [Recovered/Resolved]
  - Gastric haemorrhage [Recovered/Resolved]
  - Chest pain [Recovered/Resolved]
  - Coronary artery occlusion [Recovered/Resolved]
  - Hyperhidrosis [Recovered/Resolved]
